FAERS Safety Report 10112241 (Version 2)
Quarter: 2014Q2

REPORT INFORMATION
  Report Type: Report from Study
  Country: IL (occurrence: IL)
  Receive Date: 20140425
  Receipt Date: 20140605
  Transmission Date: 20141212
  Serious: Yes (Life-Threatening, Hospitalization)
  Sender: FDA-Public Use
  Company Number: PHHO2014IL005945

PATIENT
  Sex: 0

DRUGS (5)
  1. BLINDED NO TREATMENT RECEIVED [Suspect]
     Indication: CARDIAC FAILURE ACUTE
     Dosage: CODE NOT BROKEN
     Route: 042
     Dates: start: 20140325, end: 20140327
  2. BLINDED PLACEBO [Suspect]
     Indication: CARDIAC FAILURE ACUTE
     Dosage: CODE NOT BROKEN
     Route: 042
     Dates: start: 20140325, end: 20140327
  3. BLINDED RLX030 [Suspect]
     Indication: CARDIAC FAILURE ACUTE
     Dosage: CODE NOT BROKEN
     Route: 042
     Dates: start: 20140325, end: 20140327
  4. ASPIRIN [Suspect]
     Indication: MYOCARDIAL ISCHAEMIA
     Dosage: 100 MG, QD
  5. COUMADIN//COUMARIN [Suspect]
     Indication: ATRIAL FIBRILLATION
     Dosage: 5 MG, QD

REACTIONS (3)
  - Renal abscess [Recovering/Resolving]
  - Renal failure acute [Not Recovered/Not Resolved]
  - Anaemia [Not Recovered/Not Resolved]
